FAERS Safety Report 12331669 (Version 1)
Quarter: 2016Q2

REPORT INFORMATION
  Report Type: Spontaneous
  Country: CN (occurrence: CN)
  Receive Date: 20160504
  Receipt Date: 20160504
  Transmission Date: 20160815
  Serious: Yes (Hospitalization)
  Sender: FDA-Public Use
  Company Number: CN-PFIZER INC-2016224134

PATIENT
  Age: 63 Year
  Sex: Female

DRUGS (14)
  1. PHARMORUBICIN [Suspect]
     Active Substance: EPIRUBICIN
     Indication: INVASIVE DUCTAL BREAST CARCINOMA
     Dosage: 110 MG, 1X/DAY
     Route: 041
     Dates: start: 20151201, end: 20151201
  2. CYCLOPHOSPHAMIDE. [Suspect]
     Active Substance: CYCLOPHOSPHAMIDE
     Indication: INVASIVE DUCTAL BREAST CARCINOMA
     Dosage: 700 MG, 1X/DAY
     Route: 041
     Dates: start: 20151201, end: 20151201
  3. DEXRAZOXANE. [Suspect]
     Active Substance: DEXRAZOXANE
     Indication: PROPHYLAXIS
     Dosage: 1000 MG, 1X/DAY
     Route: 041
     Dates: start: 20151201, end: 20151201
  4. LANSOPRAZOLE. [Suspect]
     Active Substance: LANSOPRAZOLE
     Indication: PROPHYLAXIS
     Dosage: 30 MG, 1X/DAY
     Route: 041
     Dates: start: 20151130, end: 20151205
  5. SODIUM CHLORIDE. [Concomitant]
     Active Substance: SODIUM CHLORIDE
     Dosage: 100 ML, 1X/DAY
     Route: 041
     Dates: start: 20151202, end: 20151202
  6. GLUCOSE [Concomitant]
     Active Substance: DEXTROSE
     Dosage: 250 ML, 1X/DAY
     Route: 041
     Dates: start: 20151130, end: 20151205
  7. DEXAMETHASONE SODIUM PHOSPHATE. [Concomitant]
     Active Substance: DEXAMETHASONE SODIUM PHOSPHATE
     Indication: PROPHYLAXIS
     Dosage: 5 MG, 1X/DAY
     Route: 042
     Dates: start: 20151201, end: 20151201
  8. SODIUM CHLORIDE. [Concomitant]
     Active Substance: SODIUM CHLORIDE
     Dosage: 50 ML, 1X/DAY
     Route: 041
     Dates: start: 20151130, end: 20151205
  9. SODIUM CHLORIDE. [Concomitant]
     Active Substance: SODIUM CHLORIDE
     Dosage: 250 ML, 1X/DAY
     Route: 041
     Dates: start: 20151201, end: 20151201
  10. AO MING RUN [Suspect]
     Active Substance: DOCETAXEL
     Indication: INVASIVE DUCTAL BREAST CARCINOMA
     Dosage: 30 MG, 1X/DAY
     Route: 041
     Dates: start: 20151202, end: 20151202
  11. AO MING RUN [Suspect]
     Active Substance: DOCETAXEL
     Dosage: 90 MG, 1X/DAY
     Route: 041
     Dates: start: 20151202, end: 20151202
  12. TAI HE [Suspect]
     Active Substance: TROPISETRON HYDROCHLORIDE
     Indication: PROPHYLAXIS
     Dosage: 5 MG, 1X/DAY
     Route: 041
     Dates: start: 20151130, end: 20151205
  13. DEXAMETHASONE ACETATE [Concomitant]
     Active Substance: DEXAMETHASONE ACETATE
     Indication: PROPHYLAXIS
     Dosage: 7.5 MG, 1X/DAY
     Route: 048
     Dates: start: 20151130, end: 20151202
  14. KANGAI INJECTION [Concomitant]
     Indication: IMMUNE ENHANCEMENT THERAPY
     Dosage: 30 ML, 1X/DAY
     Route: 041
     Dates: start: 20151130, end: 20151205

REACTIONS (8)
  - Hepatic lesion [Recovering/Resolving]
  - Abdominal pain [Recovering/Resolving]
  - Pyrexia [Recovered/Resolved]
  - Decreased appetite [Recovering/Resolving]
  - Alanine aminotransferase increased [None]
  - Diarrhoea [Recovering/Resolving]
  - Bone marrow failure [Recovering/Resolving]
  - Aspartate aminotransferase increased [None]

NARRATIVE: CASE EVENT DATE: 20151210
